FAERS Safety Report 5068891-1 (Version None)
Quarter: 2006Q3

REPORT INFORMATION
  Report Type: 
  Country: None (occurrence: None)
  Receive Date: 20060802
  Receipt Date: 20060523
  Transmission Date: 20061208
  Serious: No
  Sender: FDA-Public Use
  Company Number: US-BRISTOL-MYERS SQUIBB COMPANY-13386115

PATIENT
  Age: 64 Year
  Sex: Female
  Weight: 98 kg

DRUGS (2)
  1. COUMADIN [Suspect]
     Indication: DEEP VEIN THROMBOSIS
     Dosage: 5 MG ALTERNATING WITH 2.5 MG DAILY
     Route: 048
  2. AVAPRO [Concomitant]

REACTIONS (2)
  - ABDOMINAL PAIN [None]
  - MYALGIA [None]
